FAERS Safety Report 9330633 (Version 1)
Quarter: 2013Q2

REPORT INFORMATION
  Report Type: Spontaneous
  Country: US (occurrence: None)
  Receive Date: 20130604
  Receipt Date: 20130604
  Transmission Date: 20140414
  Serious: Yes (Other)
  Sender: FDA-Public Use
  Company Number: None

PATIENT
  Age: 51 Year
  Sex: Female
  Weight: 74.84 kg

DRUGS (2)
  1. LEVEMIR [Suspect]
     Indication: BLOOD GLUCOSE FLUCTUATION
     Dosage: NIGHTLY, SQ
     Dates: start: 20130304, end: 20130603
  2. METOPROLOL TARTRATE [Concomitant]

REACTIONS (6)
  - Blood glucose fluctuation [None]
  - Back pain [None]
  - Abdominal distension [None]
  - Pain [None]
  - Dyspepsia [None]
  - Flatulence [None]
